FAERS Safety Report 12176522 (Version 1)
Quarter: 2016Q1

REPORT INFORMATION
  Report Type: Spontaneous
  Country: US (occurrence: US)
  Receive Date: 20160314
  Receipt Date: 20160314
  Transmission Date: 20160526
  Serious: No
  Sender: FDA-Public Use
  Company Number: US-AKORN PHARMACEUTICALS-2015AKN00234

PATIENT
  Age: 15 Year
  Sex: Male
  Weight: 53.97 kg

DRUGS (3)
  1. MYORISAN [Suspect]
     Active Substance: ISOTRETINOIN
     Indication: ACNE
     Dosage: 20 MG, 2X/DAY
     Route: 048
     Dates: start: 20150305, end: 20150327
  2. METHYLPHENIDATE CR [Concomitant]
     Dosage: 54 MG, UNK
  3. EPIPEN [Concomitant]
     Active Substance: EPINEPHRINE
     Dosage: UNK, AS NEEDED

REACTIONS (1)
  - Anxiety [Unknown]

NARRATIVE: CASE EVENT DATE: 201503
